FAERS Safety Report 12009370 (Version 1)
Quarter: 2016Q1

REPORT INFORMATION
  Report Type: Spontaneous
  Country: US (occurrence: None)
  Receive Date: 20160203
  Receipt Date: 20160203
  Transmission Date: 20160526
  Serious: No
  Sender: FDA-Public Use
  Company Number: None

PATIENT
  Age: 59 Year
  Sex: Male

DRUGS (21)
  1. SUTENT [Concomitant]
     Active Substance: SUNITINIB MALATE
  2. IRON 100 TAB PLUS [Concomitant]
  3. INLYTA [Suspect]
     Active Substance: AXITINIB
     Indication: RENAL CANCER
     Route: 048
     Dates: start: 20150812, end: 20160108
  4. SPIRONOLACT [Concomitant]
  5. LORAZEPAM. [Concomitant]
     Active Substance: LORAZEPAM
  6. ZOFRAN [Concomitant]
     Active Substance: ONDANSETRON HYDROCHLORIDE
  7. MULTI VITAMIN TAB MINERALS [Concomitant]
  8. MILK OF MAGN SUS [Concomitant]
  9. LEVOTHYROXIN [Concomitant]
     Active Substance: LEVOTHYROXINE
  10. DIPHEN/ATROP [Concomitant]
     Active Substance: ATROPINE SULFATE\DIPHENOXYLATE
  11. PROCHLORPER [Concomitant]
  12. FONDAPARINUX SOLUTION FOR INJECTION [Concomitant]
     Active Substance: FONDAPARINUX
  13. AUGMENTIN [Concomitant]
     Active Substance: AMOXICILLIN\CLAVULANATE POTASSIUM
  14. AMPHETAMINE [Concomitant]
     Active Substance: AMPHETAMINE
  15. INLYTA [Suspect]
     Active Substance: AXITINIB
     Indication: HEPATIC CANCER
     Route: 048
     Dates: start: 20150812, end: 20160108
  16. SYNTHROID [Concomitant]
     Active Substance: LEVOTHYROXINE SODIUM
  17. RANITIDINE [Concomitant]
     Active Substance: RANITIDINE\RANITIDINE HYDROCHLORIDE
  18. COUMADIN [Concomitant]
     Active Substance: WARFARIN SODIUM
  19. PROZAC [Concomitant]
     Active Substance: FLUOXETINE HYDROCHLORIDE
  20. OXYCODONE [Concomitant]
     Active Substance: OXYCODONE
  21. IMODIUM A-D [Concomitant]
     Active Substance: LOPERAMIDE HYDROCHLORIDE

REACTIONS (6)
  - Musculoskeletal chest pain [None]
  - Insomnia [None]
  - Confusional state [None]
  - Nausea [None]
  - Fatigue [None]
  - Asthenia [None]

NARRATIVE: CASE EVENT DATE: 20160108
